FAERS Safety Report 9880129 (Version 1)
Quarter: 2014Q1

REPORT INFORMATION
  Report Type: Spontaneous
  Country: US (occurrence: US)
  Receive Date: 20140207
  Receipt Date: 20140207
  Transmission Date: 20141002
  Serious: No
  Sender: FDA-Public Use
  Company Number: US-BIOGENIDEC-2013BI070602

PATIENT
  Age: 46 Year
  Sex: Female
  Weight: 97 kg

DRUGS (11)
  1. TECFIDERA [Suspect]
     Indication: MULTIPLE SCLEROSIS
     Route: 048
     Dates: start: 201303
  2. ZOLOFT [Concomitant]
  3. AMBIEN [Concomitant]
  4. GABAPENTIN [Concomitant]
  5. ADRENAL (SUPPLEMENT) [Concomitant]
  6. VITAMIN D-3 [Concomitant]
  7. ALOE VERA [Concomitant]
  8. PRIMROSE OIL ADVANCED [Concomitant]
  9. OMEGA 3 [Concomitant]
  10. BIOTIN [Concomitant]
  11. PROBIOTIC [Concomitant]

REACTIONS (18)
  - Salivary hypersecretion [Unknown]
  - Constipation [Unknown]
  - Abdominal distension [Unknown]
  - General physical health deterioration [Unknown]
  - Bladder disorder [Unknown]
  - Chest discomfort [Unknown]
  - Dyspnoea [Unknown]
  - Stress [Unknown]
  - Lymphocyte count decreased [Unknown]
  - Nausea [Unknown]
  - Flushing [Unknown]
  - Pruritus [Unknown]
  - Abdominal pain upper [Unknown]
  - Dyspepsia [Unknown]
  - Rash [Unknown]
  - Gastrointestinal disorder [Unknown]
  - Feeling hot [Unknown]
  - Erythema [Unknown]
